FAERS Safety Report 24010705 (Version 1)
Quarter: 2024Q2

REPORT INFORMATION
  Report Type: Spontaneous
  Country: US (occurrence: US)
  Receive Date: 20240625
  Receipt Date: 20240625
  Transmission Date: 20240717
  Serious: Yes (Hospitalization, Other)
  Sender: FDA-Public Use
  Company Number: US-Coherus Biosciences, Inc.-2024-COH-US000484

PATIENT

DRUGS (2)
  1. ADALIMUMAB [Suspect]
     Active Substance: ADALIMUMAB\ISOPROPYL ALCOHOL
     Indication: Crohn^s disease
     Dosage: UNK
     Dates: start: 2015
  2. AZATHIOPRINE SODIUM [Suspect]
     Active Substance: AZATHIOPRINE SODIUM
     Indication: Crohn^s disease
     Dosage: UNK
     Dates: start: 2015

REACTIONS (5)
  - Stillbirth [Not Recovered/Not Resolved]
  - Multiple organ dysfunction syndrome [Unknown]
  - Anaplastic large cell lymphoma T- and null-cell types [Recovering/Resolving]
  - Metabolic acidosis [Unknown]
  - Exposure during pregnancy [Not Recovered/Not Resolved]
